FAERS Safety Report 6218101-4 (Version None)
Quarter: 2009Q2

REPORT INFORMATION
  Report Type: 
  Country: None (occurrence: None)
  Receive Date: 20090608
  Receipt Date: 20090528
  Transmission Date: 20091009
  Serious: Yes (Other)
  Sender: FDA-Public Use
  Company Number: PHHY2009JP14348

PATIENT
  Sex: Male

DRUGS (4)
  1. LAMISIL [Suspect]
     Dosage: 125MG PER DAY
     Route: 048
     Dates: start: 20090310, end: 20090324
  2. LAMISIL [Suspect]
     Indication: TINEA PEDIS
  3. FLIVAS [Concomitant]
     Dosage: 50 MG, UNK
     Route: 048
  4. BUP-4 [Concomitant]
     Dosage: 10 MG, UNK
     Route: 048

REACTIONS (3)
  - BENIGN PROSTATIC HYPERPLASIA [None]
  - BLADDER CATHETERISATION [None]
  - URINARY RETENTION [None]
